FAERS Safety Report 25008549 (Version 1)
Quarter: 2025Q1

REPORT INFORMATION
  Report Type: Report from Study
  Country: US (occurrence: US)
  Receive Date: 20250225
  Receipt Date: 20250225
  Transmission Date: 20250408
  Serious: Yes (Death, Other)
  Sender: ACADIA PHARMACEUTICALS
  Company Number: US-ACADIA PHARMACEUTICALS INC.-ACA-2025-PIM-001816

PATIENT
  Age: 75 Year
  Sex: Female

DRUGS (16)
  1. NUPLAZID [Suspect]
     Active Substance: PIMAVANSERIN TARTRATE
     Indication: Parkinson^s disease
     Dosage: 34 MILLIGRAM, QD
     Route: 048
     Dates: start: 20230622, end: 20250131
  2. AMANTADINE [Concomitant]
     Active Substance: AMANTADINE
  3. ARMOUR THYROID [Concomitant]
     Active Substance: THYROID, PORCINE
  4. ACIDOPHILUS [Concomitant]
     Active Substance: LACTOBACILLUS ACIDOPHILUS
  5. RYTARY [Concomitant]
     Active Substance: CARBIDOPA\LEVODOPA
  6. FLUDROCORTISONE [Concomitant]
     Active Substance: FLUDROCORTISONE
  7. MIDODRINE [Concomitant]
     Active Substance: MIDODRINE
  8. OMEPRAZOLE [Concomitant]
     Active Substance: OMEPRAZOLE
  9. BIOTIN [Concomitant]
     Active Substance: BIOTIN
  10. CALCIUM [Concomitant]
     Active Substance: CALCIUM
  11. COLACE [Concomitant]
     Active Substance: DOCUSATE SODIUM
  12. MAGNESIUM [Concomitant]
     Active Substance: MAGNESIUM
  13. VITAMINS [Concomitant]
     Active Substance: VITAMINS
  14. SENNA LEAF [Concomitant]
     Active Substance: SENNA LEAF
  15. ZINC [Concomitant]
     Active Substance: ZINC
  16. ESCITALOPRAM [Concomitant]
     Active Substance: ESCITALOPRAM OXALATE

REACTIONS (2)
  - Death [Fatal]
  - Adverse drug reaction [Unknown]

NARRATIVE: CASE EVENT DATE: 20250131
